FAERS Safety Report 10174721 (Version 1)
Quarter: 2014Q2

REPORT INFORMATION
  Report Type: Spontaneous
  Country: DK (occurrence: DK)
  Receive Date: 20140515
  Receipt Date: 20140515
  Transmission Date: 20141212
  Serious: Yes (Hospitalization)
  Sender: FDA-Public Use
  Company Number: DK-PFIZER INC-2014130188

PATIENT
  Age: 60 Year
  Sex: Male

DRUGS (4)
  1. SALAZOPYRIN EN-TABS [Suspect]
     Indication: OSTEOARTHRITIS
     Dosage: 500 MG, 1X/DAY
     Route: 048
     Dates: start: 20131223, end: 20140212
  2. ANCOZAN COMP [Concomitant]
  3. SIMVASTATIN [Concomitant]
  4. OPRYMEA [Concomitant]

REACTIONS (2)
  - Haematemesis [Unknown]
  - Gastric ulcer [Unknown]
